FAERS Safety Report 10538127 (Version 1)
Quarter: 2014Q4

REPORT INFORMATION
  Report Type: Spontaneous
  Country: FR (occurrence: FR)
  Receive Date: 20141023
  Receipt Date: 20141023
  Transmission Date: 20150529
  Serious: Yes (Hospitalization)
  Sender: FDA-Public Use
  Company Number: FR-009507513-1410FRA009444

PATIENT
  Age: 33 Year
  Sex: Female

DRUGS (3)
  1. OVITRELLE [Suspect]
     Active Substance: CHORIOGONADOTROPIN ALFA
     Dosage: 1 DF, ONCE; STRENGTH: 250 MICROGRAM/ 0.5 ML
     Route: 058
     Dates: start: 20140422, end: 20140422
  2. FOLLITROPIN BETA [Suspect]
     Active Substance: FOLLITROPIN
     Dosage: 1 DF, QD; STRENGTH: 100 IU/ 0.5 ML
     Route: 058
     Dates: start: 20140407, end: 20140421
  3. ORGALUTRAN [Suspect]
     Active Substance: GANIRELIX ACETATE
     Dosage: 1 DF, QD, STRENGTH: 0.25 MG/ 0.5 ML
     Route: 058
     Dates: start: 20140407, end: 20140421

REACTIONS (3)
  - Pleural effusion [Recovered/Resolved]
  - Ascites [Recovered/Resolved]
  - Ovarian hyperstimulation syndrome [Recovered/Resolved]

NARRATIVE: CASE EVENT DATE: 20140430
